FAERS Safety Report 21382349 (Version 2)
Quarter: 2022Q3

REPORT INFORMATION
  Report Type: Report from Study
  Country: CN (occurrence: None)
  Receive Date: 20220927
  Receipt Date: 20220930
  Transmission Date: 20221027
  Serious: Yes (Hospitalization)
  Sender: FDA-Public Use
  Company Number: CN-ROCHE-3184316

PATIENT
  Age: 58 Year
  Sex: Male
  Weight: 85 kg

DRUGS (11)
  1. OBINUTUZUMAB [Suspect]
     Active Substance: OBINUTUZUMAB
     Indication: Follicular lymphoma
     Route: 042
     Dates: start: 20201006, end: 20220715
  2. ZANUBRUTINIB [Suspect]
     Active Substance: ZANUBRUTINIB
     Indication: Follicular lymphoma
     Route: 048
     Dates: start: 20201006, end: 20220808
  3. CEFUROXIME SODIUM [Concomitant]
     Active Substance: CEFUROXIME SODIUM
     Route: 042
     Dates: start: 20220907, end: 20220911
  4. ACETAMINOPHEN [Concomitant]
     Active Substance: ACETAMINOPHEN
     Dates: start: 20220907, end: 20220907
  5. DEXTROSE\SODIUM CHLORIDE [Concomitant]
     Active Substance: DEXTROSE\SODIUM CHLORIDE
     Route: 042
     Dates: start: 20220908, end: 20220908
  6. CARBAZOCHROME SODIUM SULFONATE [Concomitant]
     Active Substance: CARBAZOCHROME SODIUM SULFONATE
     Indication: Haemostasis
     Route: 042
     Dates: start: 20220908, end: 20220908
  7. FLURBIPROFEN AXETIL [Concomitant]
     Active Substance: FLURBIPROFEN AXETIL
     Dosage: INTRAOPERATIVE AND POSTOPERATIVE ANALGESIA
     Route: 042
     Dates: start: 20220908, end: 20220909
  8. OXYCODONE AND ACETAMINOPHEN [Concomitant]
     Active Substance: ACETAMINOPHEN\OXYCODONE HYDROCHLORIDE
     Route: 048
     Dates: start: 20220908, end: 20220914
  9. DIOSMIN [Concomitant]
     Active Substance: DIOSMIN
     Route: 048
     Dates: start: 20220909, end: 20220921
  10. CEFUROXIME SODIUM [Concomitant]
     Active Substance: CEFUROXIME SODIUM
     Route: 048
     Dates: start: 20220909, end: 20220914
  11. ACETAMINOPHEN\TRAMADOL HYDROCHLORIDE [Concomitant]
     Active Substance: ACETAMINOPHEN\TRAMADOL HYDROCHLORIDE
     Indication: Procedural pain
     Route: 048
     Dates: start: 20220914, end: 20220916

REACTIONS (2)
  - Anal abscess [Recovered/Resolved]
  - Haemorrhoids [Recovered/Resolved]

NARRATIVE: CASE EVENT DATE: 20220907
